FAERS Safety Report 25970301 (Version 1)
Quarter: 2025Q4

REPORT INFORMATION
  Report Type: Spontaneous
  Country: US (occurrence: US)
  Receive Date: 20251028
  Receipt Date: 20251028
  Transmission Date: 20260117
  Serious: No
  Sender: ROCHE
  Company Number: US-ROCHE-10000412737

PATIENT
  Age: 87 Year
  Sex: Female

DRUGS (2)
  1. ITOVEBI [Suspect]
     Active Substance: INAVOLISIB
     Indication: Product used for unknown indication
     Route: 065
  2. IBRANCE [Suspect]
     Active Substance: PALBOCICLIB
     Indication: Breast cancer
     Route: 048

REACTIONS (4)
  - Weight decreased [Not Recovered/Not Resolved]
  - Stomatitis [Not Recovered/Not Resolved]
  - Swollen tongue [Not Recovered/Not Resolved]
  - Fatigue [Not Recovered/Not Resolved]
